FAERS Safety Report 24862287 (Version 2)
Quarter: 2025Q2

REPORT INFORMATION
  Report Type: Report from Study
  Country: AT (occurrence: AT)
  Receive Date: 20250120
  Receipt Date: 20250603
  Transmission Date: 20250717
  Serious: Yes (Hospitalization, Other)
  Sender: ALEXION PHARMACEUTICALS
  Company Number: AT-AstraZeneca-CH-00786596A

PATIENT
  Age: 64 Year

DRUGS (2)
  1. LYNPARZA [Suspect]
     Active Substance: OLAPARIB
     Indication: Ovarian cancer
     Route: 065
  2. LYNPARZA [Suspect]
     Active Substance: OLAPARIB
     Route: 065

REACTIONS (3)
  - Metastases to lymph nodes [Recovered/Resolved with Sequelae]
  - Nausea [Recovered/Resolved]
  - Therapeutic product effect incomplete [Recovered/Resolved with Sequelae]
